FAERS Safety Report 8912504 (Version 2)
Quarter: 2013Q1

REPORT INFORMATION
  Report Type: Spontaneous
  Country: IT (occurrence: IT)
  Receive Date: 20121116
  Receipt Date: 20130102
  Transmission Date: 20140127
  Serious: Yes (Hospitalization)
  Sender: FDA-Public Use
  Company Number: IT-ABBOTT-12P-083-1006585-00

PATIENT
  Age: 45 Year
  Sex: Male

DRUGS (12)
  1. KLACID [Suspect]
     Indication: ATYPICAL MYCOBACTERIAL INFECTION
     Dosage: DAILY
     Route: 048
     Dates: start: 20121029, end: 20121107
  2. ETAPIAM [Suspect]
     Indication: ATYPICAL MYCOBACTERIAL INFECTION
     Dosage: DAILY
     Route: 048
     Dates: start: 20121026, end: 20121107
  3. LEVOXACIN [Suspect]
     Indication: ATYPICAL MYCOBACTERIAL INFECTION
     Dosage: DAILY
     Route: 048
     Dates: start: 20121029, end: 20121107
  4. OMEPRAZOLE [Concomitant]
     Indication: PRODUCT USED FOR UNKNOWN INDICATION
  5. NICOZID [Concomitant]
     Indication: PRODUCT USED FOR UNKNOWN INDICATION
     Dosage: DAILY
     Route: 048
     Dates: start: 20121026, end: 20121029
  6. BENADON [Concomitant]
     Indication: PRODUCT USED FOR UNKNOWN INDICATION
     Dosage: 1 UNIT DAILY
     Route: 048
     Dates: start: 20121026, end: 20121105
  7. LASIX [Concomitant]
     Indication: PRODUCT USED FOR UNKNOWN INDICATION
  8. POTASSIUM CHLORIDE [Concomitant]
     Indication: PRODUCT USED FOR UNKNOWN INDICATION
  9. CLENIL [Concomitant]
     Indication: PRODUCT USED FOR UNKNOWN INDICATION
  10. BRONCOVALEAS [Concomitant]
     Indication: PRODUCT USED FOR UNKNOWN INDICATION
  11. RIFADIN [Concomitant]
     Indication: PRODUCT USED FOR UNKNOWN INDICATION
     Route: 048
     Dates: start: 20121027, end: 20121029
  12. ALDACTONE [Concomitant]
     Indication: PRODUCT USED FOR UNKNOWN INDICATION
     Dosage: 1 UNIT DAILY
     Route: 048

REACTIONS (3)
  - Pruritus generalised [Not Recovered/Not Resolved]
  - Clostridium difficile colitis [Not Recovered/Not Resolved]
  - Urticaria [Not Recovered/Not Resolved]
